FAERS Safety Report 7681509-4 (Version None)
Quarter: 2011Q3

REPORT INFORMATION
  Report Type: 
  Country: None (occurrence: None)
  Receive Date: 20110812
  Receipt Date: 20110805
  Transmission Date: 20111222
  Serious: Yes (Hospitalization, Other)
  Sender: FDA-Public Use
  Company Number: PHEH2006US10968

PATIENT
  Sex: Male
  Weight: 75.736 kg

DRUGS (20)
  1. ZOCOR [Concomitant]
     Indication: LIPIDS INCREASED
     Dosage: 20 MG, QD
     Route: 048
  2. VICODIN [Concomitant]
     Dosage: UNK, PRN
  3. ALKERAN [Concomitant]
     Dosage: 2 DF, TID
     Route: 048
  4. PREVACID [Concomitant]
     Dosage: 30 MG, QHS
     Route: 048
  5. AMOXICILLIN [Concomitant]
  6. ZOMETA [Suspect]
     Indication: SPINAL FRACTURE
     Dosage: 4 MG, QW4
     Route: 042
     Dates: start: 20020417, end: 20050815
  7. KLONOPIN [Concomitant]
     Dosage: 0.5 MG, 2 TAB IN AM, 3 TAB QHS
     Route: 048
  8. CELEBREX [Concomitant]
     Indication: ARTHRITIS
  9. TEMAZEPAM [Concomitant]
     Dosage: 30 MG, QHS
     Route: 048
  10. SOMA [Concomitant]
     Dosage: UNK, PRN
  11. AMBIEN [Concomitant]
  12. AREDIA [Suspect]
     Indication: SPINAL FRACTURE
     Dosage: UNK , QMO
     Route: 042
     Dates: start: 19990101, end: 20030101
  13. PREDNISONE [Concomitant]
     Dosage: 20 MG, TID
  14. NITROGLYCERIN [Concomitant]
  15. PRAVACHOL [Concomitant]
  16. ELAVIL [Concomitant]
     Dosage: 10 MG, QHS
  17. NITROGLYCERIN ^DAVID BULL^ [Concomitant]
     Dosage: UNK, PRN
     Route: 060
  18. NEURONTIN [Concomitant]
     Indication: NEUROPATHY PERIPHERAL
     Dosage: 300 MG, TID
     Route: 048
     Dates: start: 20030101
  19. PAXIL [Concomitant]
     Dosage: 20 MG, QD
     Route: 048
  20. LESCOL [Concomitant]
     Dosage: 40 MG, QD
     Route: 048

REACTIONS (75)
  - TOOTH DISORDER [None]
  - ANXIETY [None]
  - ANHEDONIA [None]
  - GINGIVAL BLEEDING [None]
  - INJURY [None]
  - BACK PAIN [None]
  - PAIN IN JAW [None]
  - NEUROPATHY PERIPHERAL [None]
  - OSTEOPENIA [None]
  - OEDEMA MUCOSAL [None]
  - ELECTROCARDIOGRAM ABNORMAL [None]
  - PARAESTHESIA [None]
  - BURSITIS [None]
  - BONE CYST [None]
  - DEEP VEIN THROMBOSIS [None]
  - PAIN [None]
  - IRON DEFICIENCY ANAEMIA [None]
  - SPINAL MYELOGRAM [None]
  - NUCLEAR MAGNETIC RESONANCE IMAGING ABNORMAL [None]
  - LIPOMA [None]
  - MULTIPLE MYELOMA [None]
  - HAEMORRHOIDS [None]
  - RADICULOPATHY [None]
  - PAIN IN EXTREMITY [None]
  - PULPITIS DENTAL [None]
  - PERIPHERAL COLDNESS [None]
  - DEHYDRATION [None]
  - SLEEP APNOEA SYNDROME [None]
  - ACUTE SINUSITIS [None]
  - DEMYELINATION [None]
  - INSOMNIA [None]
  - VIRAL UPPER RESPIRATORY TRACT INFECTION [None]
  - RECTAL HAEMORRHAGE [None]
  - INTERVERTEBRAL DISC DEGENERATION [None]
  - HERPES ZOSTER [None]
  - BURNING SENSATION [None]
  - PERIODONTITIS [None]
  - BLOOD CREATINE PHOSPHOKINASE INCREASED [None]
  - CEREBRAL ATROPHY [None]
  - GLIOSIS [None]
  - FALL [None]
  - TENDON DISORDER [None]
  - ACTINIC KERATOSIS [None]
  - ERYTHEMA [None]
  - IMPAIRED HEALING [None]
  - LUMBAR SPINAL STENOSIS [None]
  - SPONDYLITIS [None]
  - DEVICE MALFUNCTION [None]
  - PLANTAR FASCIITIS [None]
  - CHRONIC SINUSITIS [None]
  - LIGAMENT SPRAIN [None]
  - OSTEONECROSIS OF JAW [None]
  - ORAL PAIN [None]
  - SPINAL FRACTURE [None]
  - MUCOSAL INFLAMMATION [None]
  - ARTHRALGIA [None]
  - HYPERHIDROSIS [None]
  - CHEST PAIN [None]
  - DIPLOPIA [None]
  - ANGIOPATHY [None]
  - BRONCHITIS [None]
  - INFECTION [None]
  - JAW DISORDER [None]
  - BONE DISORDER [None]
  - PNEUMONIA [None]
  - BLOOD IMMUNOGLOBULIN A INCREASED [None]
  - SECONDARY IMMUNODEFICIENCY [None]
  - SKELETAL SURVEY ABNORMAL [None]
  - RHABDOMYOLYSIS [None]
  - KYPHOSIS [None]
  - HYPERCHOLESTEROLAEMIA [None]
  - COMPRESSION FRACTURE [None]
  - TENOSYNOVITIS [None]
  - ROTATOR CUFF SYNDROME [None]
  - OSTEOARTHRITIS [None]
